FAERS Safety Report 17169108 (Version 2)
Quarter: 2019Q4

REPORT INFORMATION
  Report Type: Report from Study
  Country: JP (occurrence: JP)
  Receive Date: 20191218
  Receipt Date: 20191225
  Transmission Date: 20200122
  Serious: Yes (Hospitalization)
  Sender: FDA-Public Use
  Company Number: JP-ROCHE-2497955

PATIENT
  Age: 52 Year
  Sex: Female
  Weight: 43 kg

DRUGS (2)
  1. ATEZOLIZUMAB. [Suspect]
     Active Substance: ATEZOLIZUMAB
     Indication: CERVIX CARCINOMA
     Dosage: LAST DOSE OF ATEZOLIZUMAB WAS ADMINISTERED ON 28/NOV/2019
     Route: 041
     Dates: start: 20191128
  2. BEVACIZUMAB. [Suspect]
     Active Substance: BEVACIZUMAB
     Indication: CERVIX CARCINOMA
     Dosage: LAST DOSE OF BEVACIZUMAB WAS ADMINISTERED ON 28/NOV/2019
     Route: 042
     Dates: start: 20191128

REACTIONS (2)
  - Pyrexia [Recovered/Resolved]
  - Skin reaction [Recovered/Resolved]

NARRATIVE: CASE EVENT DATE: 20191209
